FAERS Safety Report 7051970 (Version 1)
Quarter: 2020Q3

REPORT INFORMATION
  Report Type: Report from Study
  Country: US (occurrence: US)
  Receive Date: 20090716
  Receipt Date: 20090716
  Transmission Date: 20201104
  Serious: Yes (Other)
  Sender: FDA-Public Use
  Company Number: US-ROCHE-642332

PATIENT
  Age: 60 Year
  Sex: Female
  Weight: 96.2 kg

DRUGS (8)
  1. IBANDRONIC ACID. [Suspect]
     Active Substance: IBANDRONIC ACID
     Dosage: LAST DOSE ADMINISTERED ON 01 JUL 09
     Route: 048
  2. IBANDRONIC ACID. [Suspect]
     Active Substance: IBANDRONIC ACID
     Dosage: TOTAL DOSE ADMINISTERED SO FAR 1300 MG; FREQUENCY: DAILY; TREATMENT HELD FOR 4 WEEKS
     Route: 048
     Dates: start: 20080821
  3. ADRIAMYCIN [Concomitant]
     Active Substance: DOXORUBICIN HYDROCHLORIDE
     Dates: start: 200808, end: 200901
  4. CYTOXAN [Concomitant]
     Active Substance: CYCLOPHOSPHAMIDE
     Dates: start: 200808, end: 200901
  5. NEOSAR [Concomitant]
     Active Substance: CYCLOPHOSPHAMIDE
     Dates: start: 200808, end: 200901
  6. RUBEX [Concomitant]
     Active Substance: DOXORUBICIN HYDROCHLORIDE
     Dates: start: 200808, end: 200901
  7. PULMICORT RESPULES [Concomitant]
     Active Substance: BUDESONIDE
  8. TAXOTERE [Concomitant]
     Active Substance: DOCETAXEL
     Dates: start: 200808, end: 200901

REACTIONS (1)
  - Osteonecrosis [Recovered/Resolved]

NARRATIVE: CASE EVENT DATE: 20081016
